FAERS Safety Report 9717767 (Version 1)
Quarter: 2013Q4

REPORT INFORMATION
  Report Type: Report from Study
  Country: IT (occurrence: IT)
  Receive Date: 20131127
  Receipt Date: 20131127
  Transmission Date: 20140711
  Serious: Yes (Hospitalization)
  Sender: FDA-Public Use
  Company Number: IT-GLAXOSMITHKLINE-B0928293A

PATIENT
  Age: 63 Year
  Sex: Female

DRUGS (6)
  1. RYTMONORM [Suspect]
     Indication: PRODUCT USED FOR UNKNOWN INDICATION
     Route: 065
     Dates: start: 20090402, end: 20130924
  2. CATAPRESAN [Suspect]
     Indication: PRODUCT USED FOR UNKNOWN INDICATION
     Dosage: 450MCG PER DAY
     Route: 065
     Dates: start: 20090402, end: 20130924
  3. EPOETIN BETA [Suspect]
     Indication: RENAL FAILURE CHRONIC
     Route: 042
     Dates: start: 20130829
  4. MEPRAL [Concomitant]
     Dosage: 20MG PER DAY
     Dates: start: 20090402
  5. FOZNOL [Concomitant]
     Dosage: 3000MCG PER DAY
     Dates: start: 20130427
  6. METOCLOPRAMIDE [Concomitant]
     Dosage: 2500MCG PER DAY
     Dates: start: 20130709

REACTIONS (6)
  - Sinus bradycardia [Recovered/Resolved]
  - Malaise [Unknown]
  - Hypotension [Unknown]
  - Palpitations [Unknown]
  - Hyperkalaemia [Unknown]
  - Asthenia [Unknown]
